FAERS Safety Report 7047710-8 (Version None)
Quarter: 2010Q4

REPORT INFORMATION
  Report Type: 
  Country: None (occurrence: None)
  Receive Date: 20101015
  Receipt Date: 20101008
  Transmission Date: 20110411
  Serious: Yes (Other)
  Sender: FDA-Public Use
  Company Number: CA-BRISTOL-MYERS SQUIBB COMPANY-14844898

PATIENT
  Age: 63 Year
  Sex: Female

DRUGS (15)
  1. ORENCIA [Suspect]
     Indication: RHEUMATOID ARTHRITIS
     Dosage: 16JUN,29JUN,11AUG,08SEP,06OCT,03NOV2009 01DEC09, 14SEP10 NO OF INF:17
     Route: 042
     Dates: start: 20090602
  2. PREDNISONE [Concomitant]
     Dosage: DOSE WAS INCREASED
  3. MELOXICAM [Concomitant]
  4. CITALOPRAM HYDROBROMIDE [Concomitant]
  5. ELTROXIN [Concomitant]
  6. METHOTREXATE SODIUM [Concomitant]
  7. FOLIC ACID [Concomitant]
  8. ACTONEL [Concomitant]
  9. ADVAIR DISKUS 100/50 [Concomitant]
  10. SINGULAIR [Concomitant]
  11. VENTOLIN [Concomitant]
  12. PREVACID [Concomitant]
  13. CRESTOR [Concomitant]
  14. TYLENOL W/ CODEINE NO. 3 [Concomitant]
  15. FLOVENT [Concomitant]

REACTIONS (6)
  - ASTHMA [None]
  - FATIGUE [None]
  - MYALGIA [None]
  - PAIN IN EXTREMITY [None]
  - PNEUMONIA VIRAL [None]
  - UPPER RESPIRATORY TRACT INFECTION [None]
